FAERS Safety Report 19331869 (Version 6)
Quarter: 2022Q1

REPORT INFORMATION
  Report Type: Report from Study
  Country: US (occurrence: US)
  Receive Date: 20210529
  Receipt Date: 20220211
  Transmission Date: 20220424
  Serious: Yes (Other)
  Sender: FDA-Public Use
  Company Number: NVSC2021US118500

PATIENT
  Sex: Female

DRUGS (1)
  1. MAYZENT [Suspect]
     Active Substance: SIPONIMOD
     Indication: Product used for unknown indication
     Dosage: UNK
     Route: 065

REACTIONS (15)
  - Multiple sclerosis [Unknown]
  - Muscle disorder [Unknown]
  - Pain in extremity [Unknown]
  - Myalgia [Unknown]
  - Gait disturbance [Unknown]
  - Chest pain [Unknown]
  - Dyspnoea [Unknown]
  - Malaise [Unknown]
  - Hypokinesia [Unknown]
  - Illness [Unknown]
  - Feeling abnormal [Unknown]
  - Confusional state [Unknown]
  - Headache [Unknown]
  - Vision blurred [Unknown]
  - Dizziness [Unknown]
